FAERS Safety Report 21704916 (Version 1)
Quarter: 2022Q4

REPORT INFORMATION
  Report Type: Report from Study
  Country: US (occurrence: US)
  Receive Date: 20221209
  Receipt Date: 20221209
  Transmission Date: 20230113
  Serious: No
  Sender: FDA-Public Use
  Company Number: US-ABBVIE-4182710

PATIENT
  Age: 65 Year
  Sex: Female

DRUGS (2)
  1. SKYRIZI [Suspect]
     Active Substance: RISANKIZUMAB-RZAA
     Indication: Psoriasis
     Dosage: WEEK 4 AND EVERY 12 WEEKS THEREAFTER
     Route: 058
  2. SKYRIZI [Suspect]
     Active Substance: RISANKIZUMAB-RZAA
     Dosage: WEEK 0
     Route: 058
     Dates: start: 20220805, end: 20220805

REACTIONS (7)
  - Seborrhoea [Unknown]
  - Pharyngitis streptococcal [Unknown]
  - Erythema [Unknown]
  - Night sweats [Unknown]
  - Pruritus [Unknown]
  - Acne [Unknown]
  - Cough [Unknown]

NARRATIVE: CASE EVENT DATE: 20220901
